FAERS Safety Report 24652547 (Version 1)
Quarter: 2024Q4

REPORT INFORMATION
  Report Type: Spontaneous
  Country: US (occurrence: US)
  Receive Date: 20241122
  Receipt Date: 20241122
  Transmission Date: 20250114
  Serious: Yes (Hospitalization, Other)
  Sender: ACCORD
  Company Number: US-Accord-456406

PATIENT
  Age: 7 Decade
  Sex: Female

DRUGS (1)
  1. APIXABAN [Suspect]
     Active Substance: APIXABAN
     Indication: Atrial fibrillation
     Dosage: SCHEDULED DOSE OF APIXABAN AT 20:21

REACTIONS (3)
  - Treatment failure [Unknown]
  - Embolism arterial [Recovered/Resolved]
  - Cerebrovascular accident [Recovered/Resolved]
